FAERS Safety Report 5897478-3 (Version None)
Quarter: 2008Q3

REPORT INFORMATION
  Report Type: 
  Country: None (occurrence: None)
  Receive Date: 20080908
  Receipt Date: 20080604
  Transmission Date: 20090109
  Serious: Yes (Hospitalization)
  Sender: FDA-Public Use
  Company Number: 1-16239065

PATIENT
  Age: 75 Year
  Weight: 109.7705 kg

DRUGS (5)
  1. WARFARIN SODIUM [Suspect]
     Dosage: 5 MG DAILY, ORAL
     Route: 048
     Dates: start: 20080425
  2. NORVASC [Concomitant]
  3. ENALAPRIL MALEATE [Concomitant]
  4. PROBENECID [Concomitant]
  5. DOXAZOSIN MESYLATE [Concomitant]

REACTIONS (3)
  - INCREASED TENDENCY TO BRUISE [None]
  - INTERNATIONAL NORMALISED RATIO INCREASED [None]
  - PROTHROMBIN TIME PROLONGED [None]
